FAERS Safety Report 8322728-3 (Version None)
Quarter: 2012Q2

REPORT INFORMATION
  Report Type: 
  Country: None (occurrence: None)
  Receive Date: 20120430
  Receipt Date: 20120419
  Transmission Date: 20120825
  Serious: Yes (Hospitalization)
  Sender: FDA-Public Use
  Company Number: FR-BRISTOL-MYERS SQUIBB COMPANY-16538696

PATIENT
  Sex: Male

DRUGS (2)
  1. METHADONE HCL [Suspect]
     Indication: DEPENDENCE
     Route: 065
  2. ABILIFY [Suspect]
     Indication: SCHIZOPHRENIA
     Dosage: DOSE REDUCED ON 2011 25MG/D
     Route: 048
     Dates: start: 20110101

REACTIONS (1)
  - CARDIAC DISORDER [None]
